FAERS Safety Report 20489761 (Version 4)
Quarter: 2024Q1

REPORT INFORMATION
  Report Type: Report from Study
  Country: JP (occurrence: JP)
  Receive Date: 20220218
  Receipt Date: 20240311
  Transmission Date: 20240410
  Serious: Yes (Other)
  Sender: FDA-Public Use
  Company Number: JP-VIIV HEALTHCARE ULC-JP2019JPN049482

PATIENT

DRUGS (3)
  1. ABACAVIR SULFATE\DOLUTEGRAVIR SODIUM\LAMIVUDINE [Suspect]
     Active Substance: ABACAVIR SULFATE\DOLUTEGRAVIR SODIUM\LAMIVUDINE
     Indication: HIV infection
     Dosage: 1 DF, 1D
     Route: 048
     Dates: start: 20180125, end: 20220623
  2. DOVATO [Suspect]
     Active Substance: DOLUTEGRAVIR SODIUM\LAMIVUDINE
     Indication: HIV infection
     Dosage: 1 DF, 1D
     Dates: start: 20220624
  3. RINDERON VG [Concomitant]
     Active Substance: BETAMETHASONE VALERATE\GENTAMICIN SULFATE
     Indication: Pruritus
     Dosage: UNK
     Dates: start: 20180125, end: 20200310

REACTIONS (11)
  - Anal abscess [Recovering/Resolving]
  - Anal abscess [Recovering/Resolving]
  - Monkeypox [Recovered/Resolved]
  - Faeces soft [Recovering/Resolving]
  - Nausea [Recovering/Resolving]
  - Herpes virus infection [Recovering/Resolving]
  - Dry skin [Recovering/Resolving]
  - Urethritis chlamydial [Recovering/Resolving]
  - Gastroenteritis [Recovering/Resolving]
  - Urethritis chlamydial [Recovering/Resolving]
  - Alopecia [Not Recovered/Not Resolved]

NARRATIVE: CASE EVENT DATE: 20180125
